FAERS Safety Report 25856675 (Version 1)
Quarter: 2025Q3

REPORT INFORMATION
  Report Type: Other
  Country: CA (occurrence: CA)
  Receive Date: 20250929
  Receipt Date: 20250929
  Transmission Date: 20251020
  Serious: Yes (Other)
  Sender: APOTEX
  Company Number: CA-PGRTD-001150390

PATIENT
  Age: 56 Year
  Sex: Male

DRUGS (1)
  1. CARBAMAZEPINE [Suspect]
     Active Substance: CARBAMAZEPINE
     Indication: Product used for unknown indication
     Dosage: 800 MILLIGRAM, QD
     Route: 048

REACTIONS (7)
  - Hepatotoxicity [Recovering/Resolving]
  - Polydipsia [Recovering/Resolving]
  - Psychotic disorder [Recovering/Resolving]
  - Abnormal behaviour [Recovering/Resolving]
  - Anticonvulsant drug level increased [Recovering/Resolving]
  - Seizure [Recovering/Resolving]
  - Hyponatraemia [Recovering/Resolving]
